FAERS Safety Report 6175576-7 (Version None)
Quarter: 2009Q2

REPORT INFORMATION
  Report Type: 
  Country: None (occurrence: None)
  Receive Date: 20090429
  Receipt Date: 20090424
  Transmission Date: 20091009
  Serious: Yes (Life-Threatening, Hospitalization)
  Sender: FDA-Public Use
  Company Number: 2009SP008135

PATIENT
  Age: 51 Year
  Sex: Male
  Weight: 77.4 kg

DRUGS (8)
  1. PEG-INTRON [Suspect]
     Indication: HEPATITIS C
     Dosage: 80 MCG; QW; SC
     Route: 058
     Dates: start: 20080508, end: 20090402
  2. REBETOL [Suspect]
     Indication: HEPATITIS C
     Dosage: 800 MG; QD; PO
     Route: 048
     Dates: start: 20080508, end: 20090408
  3. AMLODIPINE [Concomitant]
  4. LENDORMIN [Concomitant]
  5. TAKEPRON [Concomitant]
  6. DORAL [Concomitant]
  7. LOXONIN [Concomitant]
  8. GAMOFA [Concomitant]

REACTIONS (1)
  - ACUTE HEPATIC FAILURE [None]
